FAERS Safety Report 9049198 (Version 1)
Quarter: 2013Q1

REPORT INFORMATION
  Report Type: Spontaneous
  Country: US (occurrence: None)
  Receive Date: 20130130
  Receipt Date: 20130130
  Transmission Date: 20140127
  Serious: Yes (Other)
  Sender: FDA-Public Use
  Company Number: None

PATIENT
  Age: 71 Year
  Sex: Female
  Weight: 106.6 kg

DRUGS (1)
  1. CYMBALTA [Suspect]
     Indication: MAJOR DEPRESSION
     Route: 048
     Dates: start: 2006, end: 2012

REACTIONS (8)
  - Oropharyngeal pain [None]
  - Nasopharyngitis [None]
  - Confusional state [None]
  - Musculoskeletal stiffness [None]
  - Muscle twitching [None]
  - Haemorrhage [None]
  - Blood pressure increased [None]
  - Memory impairment [None]
